FAERS Safety Report 4629859-X (Version None)
Quarter: 2005Q2

REPORT INFORMATION
  Report Type: 
  Country: None (occurrence: None)
  Receive Date: 20050407
  Receipt Date: 20050324
  Transmission Date: 20051028
  Serious: Yes (Hospitalization)
  Sender: FDA-Public Use
  Company Number: 430006N05FRA

PATIENT
  Age: 35 Year
  Sex: Female

DRUGS (6)
  1. MITOXANTRONE [Suspect]
     Indication: MULTIPLE SCLEROSIS
     Dosage: CU, 1 IN 1 CYCLE, INTRAVENOUS
     Route: 042
  2. VENLAFAXINE HCL [Concomitant]
  3. CLONAZEPAM [Concomitant]
  4. FOLIC ACID [Concomitant]
  5. DIHYDROERGOTAMINE MESYLATE [Concomitant]
  6. TROSPIUM CHLORIDE [Concomitant]

REACTIONS (3)
  - ANAEMIA [None]
  - FEBRILE NEUTROPENIA [None]
  - MYELODYSPLASTIC SYNDROME [None]
